FAERS Safety Report 9669556 (Version 1)
Quarter: 2013Q4

REPORT INFORMATION
  Report Type: Spontaneous
  Country: ES (occurrence: ES)
  Receive Date: 20131105
  Receipt Date: 20131105
  Transmission Date: 20140711
  Serious: Yes (Other)
  Sender: FDA-Public Use
  Company Number: ES-JNJFOC-20131018195

PATIENT
  Sex: 0

DRUGS (1)
  1. REMICADE [Suspect]
     Indication: PSORIASIS
     Dosage: START DATE: BETWEEN 2006 AND 2012; FREQUENCY: 0, 2, 6 AND EVERY 8 WEEKS.
     Route: 042

REACTIONS (1)
  - Lung neoplasm [Unknown]
